FAERS Safety Report 6787297-8 (Version None)
Quarter: 2010Q2

REPORT INFORMATION
  Report Type: 
  Country: None (occurrence: None)
  Receive Date: 20100623
  Receipt Date: 20060420
  Transmission Date: 20101027
  Serious: No
  Sender: FDA-Public Use
  Company Number: US-PFIZER INC-2006057284

PATIENT
  Age: 79 Year
  Weight: 90.72 kg

DRUGS (4)
  1. ACCURETIC [Interacting]
     Indication: HYPERTENSION
     Dosage: 20/12.5MG,ONCE DAILY
     Route: 048
  2. FLOMAX [Interacting]
     Indication: BENIGN PROSTATIC HYPERPLASIA
     Route: 048
     Dates: start: 20060405
  3. CIPROFLOXACIN [Suspect]
     Indication: PROSTATE INFECTION
     Route: 048
     Dates: start: 20060405, end: 20060420
  4. COUMADIN [Concomitant]
     Route: 048

REACTIONS (4)
  - BENIGN PROSTATIC HYPERPLASIA [None]
  - DRUG INTERACTION [None]
  - OEDEMA PERIPHERAL [None]
  - PROSTATE INFECTION [None]
